FAERS Safety Report 4318426-3 (Version None)
Quarter: 2004Q1

REPORT INFORMATION
  Report Type: 
  Country: None (occurrence: None)
  Receive Date: 20040315
  Receipt Date: 20040302
  Transmission Date: 20041129
  Serious: Yes (Life-Threatening, Other)
  Sender: FDA-Public Use
  Company Number: 2004-00882

PATIENT
  Age: 19 Year
  Sex: Female

DRUGS (1)
  1. VERAPAMIL [Suspect]
     Indication: INSULINOMA
     Dosage: 0.025 MG, DAILY

REACTIONS (1)
  - INSULINOMA [None]
